FAERS Safety Report 23982295 (Version 1)
Quarter: 2024Q2

REPORT INFORMATION
  Report Type: Report from Study
  Country: TW (occurrence: TW)
  Receive Date: 20240617
  Receipt Date: 20240617
  Transmission Date: 20240716
  Serious: Yes (Other)
  Sender: FDA-Public Use
  Company Number: TW-BAYER-2024A085836

PATIENT
  Age: 53 Year
  Sex: Male

DRUGS (1)
  1. EYLEA [Suspect]
     Active Substance: AFLIBERCEPT
     Indication: Retinal vein occlusion
     Dosage: 0.05 ML, ONCE, 40 MG/ML

REACTIONS (5)
  - Retinal oedema [Unknown]
  - Retinal degeneration [Unknown]
  - Glaucoma [Unknown]
  - Retinal tear [Unknown]
  - Presbyopia [Unknown]
